FAERS Safety Report 13775336 (Version 1)
Quarter: 2017Q3

REPORT INFORMATION
  Report Type: Spontaneous
  Country: US (occurrence: US)
  Receive Date: 20170720
  Receipt Date: 20170720
  Transmission Date: 20171127
  Serious: No
  Sender: FDA-Public Use
  Company Number: US-MYLANLABS-2017M1024923

PATIENT
  Sex: Female
  Weight: 75 kg

DRUGS (1)
  1. PREDNISONE. [Suspect]
     Active Substance: PREDNISONE
     Indication: RHEUMATOID NODULE

REACTIONS (1)
  - Migraine [Unknown]
